FAERS Safety Report 6241282-3 (Version None)
Quarter: 2009Q2

REPORT INFORMATION
  Report Type: 
  Country: None (occurrence: None)
  Receive Date: 20090623
  Receipt Date: 20090615
  Transmission Date: 20091009
  Serious: Yes (Hospitalization)
  Sender: FDA-Public Use
  Company Number: DE-BRISTOL-MYERS SQUIBB COMPANY-14652150

PATIENT
  Age: 63 Year
  Sex: Male

DRUGS (1)
  1. MITOMYCIN [Suspect]
     Indication: BLADDER NEOPLASM
     Dosage: TAKEN ON 10FEB2009-09FEB2009
     Dates: start: 20090123, end: 20090123

REACTIONS (3)
  - BLADDER DISORDER [None]
  - CALCULUS URINARY [None]
  - IMPAIRED HEALING [None]
